FAERS Safety Report 14853523 (Version 1)
Quarter: 2018Q2

REPORT INFORMATION
  Report Type: Spontaneous
  Country: US (occurrence: US)
  Receive Date: 20180507
  Receipt Date: 20180507
  Transmission Date: 20180711
  Serious: Yes (Death)
  Sender: FDA-Public Use
  Company Number: PHHO2014US019072

PATIENT
  Age: 28 Year
  Sex: Female

DRUGS (2)
  1. PAZOPANIB [Suspect]
     Active Substance: PAZOPANIB
     Dosage: 400 MG, QD
     Route: 048
  2. PAZOPANIB [Suspect]
     Active Substance: PAZOPANIB
     Indication: MEDULLARY THYROID CANCER
     Dosage: 800 MG, QD
     Route: 048

REACTIONS (4)
  - Enteritis [Unknown]
  - Product use in unapproved indication [Unknown]
  - Colitis [Unknown]
  - Sepsis [Fatal]
